FAERS Safety Report 24377632 (Version 1)
Quarter: 2024Q3

REPORT INFORMATION
  Report Type: Spontaneous
  Country: US (occurrence: US)
  Receive Date: 20240930
  Receipt Date: 20240930
  Transmission Date: 20241017
  Serious: No
  Sender: ARDELYX
  Company Number: US-ARDELYX-2024ARDX006864

PATIENT
  Sex: Female
  Weight: 54 kg

DRUGS (3)
  1. IBSRELA [Suspect]
     Active Substance: TENAPANOR HYDROCHLORIDE
     Indication: Irritable bowel syndrome
     Dosage: 50 MILLIGRAM, BID IMMEDIATELY BEFORE MEALS
     Route: 048
     Dates: start: 202405
  2. LEVOTHYROXINE [Suspect]
     Active Substance: LEVOTHYROXINE\LEVOTHYROXINE SODIUM
     Indication: Hypothyroidism
     Dosage: UNK, 30-60 MINUTES BEFORE BREAKFAST (ON AN EMPTY STOMACH)
     Route: 065
     Dates: end: 202409
  3. LIOTHYRONINE [Suspect]
     Active Substance: LIOTHYRONINE
     Indication: Hypothyroidism
     Dosage: UNK, 30-60 MINUTES BEFORE BREAKFAST (ON AN EMPTY STOMACH)
     Route: 065
     Dates: end: 202409

REACTIONS (1)
  - Inhibitory drug interaction [Unknown]

NARRATIVE: CASE EVENT DATE: 20240101
